FAERS Safety Report 4294271-2 (Version None)
Quarter: 2004Q1

REPORT INFORMATION
  Report Type: 
  Country: None (occurrence: None)
  Receive Date: 20040211
  Receipt Date: 20030801
  Transmission Date: 20041129
  Serious: No
  Sender: FDA-Public Use
  Company Number: US-GLAXOSMITHKLINE-A0419955A

PATIENT
  Age: 42 Year
  Sex: Female

DRUGS (3)
  1. LAMICTAL [Suspect]
     Indication: MIGRAINE
     Dosage: 100MG TWICE PER DAY
     Route: 048
     Dates: start: 20030614
  2. WELLBUTRIN [Concomitant]
     Route: 048
     Dates: start: 20030714
  3. WELLBUTRIN [Concomitant]
     Route: 048
     Dates: start: 20030721

REACTIONS (7)
  - AMNESIA [None]
  - COGNITIVE DISORDER [None]
  - DYSARTHRIA [None]
  - GAIT DISTURBANCE [None]
  - HALLUCINATION, VISUAL [None]
  - INSOMNIA [None]
  - NAUSEA [None]
